FAERS Safety Report 7507043-X (Version None)
Quarter: 2011Q2

REPORT INFORMATION
  Report Type: 
  Country: None (occurrence: None)
  Receive Date: 20110526
  Receipt Date: 20110516
  Transmission Date: 20111010
  Serious: Yes (Other)
  Sender: FDA-Public Use
  Company Number: US-UCBSA-019362

PATIENT
  Sex: Female
  Weight: 56.69 kg

DRUGS (15)
  1. LAMICTAL [Concomitant]
     Indication: DEPRESSION
     Route: 048
     Dates: start: 20050101
  2. ENTECORT EC [Concomitant]
     Indication: CROHN'S DISEASE
     Dosage: ONE HS,
     Route: 048
     Dates: start: 20100101
  3. VICODIN [Concomitant]
     Indication: CROHN'S DISEASE
     Dosage: Q 4-6 HR PRN,VARIABLE
     Route: 048
  4. NEURONTIN [Concomitant]
     Indication: MIGRAINE
     Route: 048
  5. GABAPENTIN [Concomitant]
     Indication: MIGRAINE
  6. YAZ [Concomitant]
     Indication: CONTRACEPTION
     Dosage: ONE TAB,
     Route: 048
     Dates: start: 20050101
  7. CIMZIA [Suspect]
     Indication: CROHN'S DISEASE
     Route: 058
     Dates: start: 20100505
  8. IMITREX [Concomitant]
     Indication: MIGRAINE
     Dosage: INJECT PEN,VARIABLE
     Dates: start: 20100101
  9. FLONASE [Concomitant]
     Indication: SEASONAL ALLERGY
     Dosage: 1 SPRAY EACH NOSTRIL,VARIABLE
     Route: 045
  10. AMITRIPTYLINE HCL [Concomitant]
     Indication: MIGRAINE
  11. IMURAN [Concomitant]
     Indication: CROHN'S DISEASE
     Dosage: ONE HS,
     Route: 048
     Dates: start: 20100101
  12. RELPAX [Concomitant]
     Indication: MIGRAINE
     Dosage: MAXIMUM 2 DOSES,
     Route: 048
     Dates: start: 20050101
  13. DEXILANT [Concomitant]
     Indication: GASTROOESOPHAGEAL REFLUX DISEASE
     Route: 048
     Dates: start: 20100101
  14. ZYRTEC [Concomitant]
     Indication: SEASONAL ALLERGY
     Route: 048
     Dates: start: 20020101
  15. CIMZIA [Suspect]
     Route: 058
     Dates: start: 20101001, end: 20110204

REACTIONS (4)
  - INTESTINAL RESECTION [None]
  - MALAISE [None]
  - ABDOMINAL PAIN [None]
  - ASTHENIA [None]
